FAERS Safety Report 9054489 (Version 1)
Quarter: 2013Q1

REPORT INFORMATION
  Report Type: Spontaneous
  Country: US (occurrence: US)
  Receive Date: 20130208
  Receipt Date: 20130208
  Transmission Date: 20140127
  Serious: No
  Sender: FDA-Public Use
  Company Number: US-GLAXOSMITHKLINE-A0988509A

PATIENT
  Sex: Male

DRUGS (4)
  1. PAXIL [Suspect]
     Indication: DEPRESSION
     Dosage: 40MG PER DAY
     Route: 048
     Dates: start: 2000
  2. WELLBUTRIN SR [Suspect]
     Indication: DEPRESSION
     Dosage: 150MG TWICE PER DAY
     Route: 048
     Dates: start: 20120723
  3. XANAX [Concomitant]
  4. SOMA [Concomitant]

REACTIONS (6)
  - Weight increased [Recovered/Resolved]
  - Muscle twitching [Not Recovered/Not Resolved]
  - Myoclonus [Not Recovered/Not Resolved]
  - Asthenopia [Not Recovered/Not Resolved]
  - Visual impairment [Not Recovered/Not Resolved]
  - Asthenopia [Not Recovered/Not Resolved]
